FAERS Safety Report 5657030-1 (Version None)
Quarter: 2008Q1

REPORT INFORMATION
  Report Type: 
  Country: None (occurrence: None)
  Receive Date: 20080310
  Receipt Date: 20080227
  Transmission Date: 20080703
  Serious: Yes (Other)
  Sender: FDA-Public Use
  Company Number: US-ROCHE-549831

PATIENT
  Age: 5 Year
  Sex: Male

DRUGS (1)
  1. TAMIFLU [Suspect]
     Dosage: TAMIFLU 45 MG SUSPENSION, ONE DOSE ADMINISTERED ON 25 FEBRUARY 2008.
     Route: 048
     Dates: start: 20080225, end: 20080225

REACTIONS (1)
  - CONVULSION [None]
